FAERS Safety Report 5340981-5 (Version None)
Quarter: 2007Q2

REPORT INFORMATION
  Report Type: 
  Country: None (occurrence: None)
  Receive Date: 20070405
  Receipt Date: 20070123
  Transmission Date: 20071010
  Serious: No
  Sender: FDA-Public Use
  Company Number: US200701004632

PATIENT
  Age: 41 Year
  Sex: Female

DRUGS (4)
  1. CYMBALTA [Suspect]
     Indication: ANXIETY
     Dosage: SEE IMAGE
     Dates: start: 20070109, end: 20070115
  2. CYMBALTA [Suspect]
     Indication: ANXIETY
     Dosage: SEE IMAGE
     Dates: start: 20070116
  3. CYMBALTA [Suspect]
  4. XANAX [Concomitant]

REACTIONS (4)
  - ANXIETY [None]
  - FEELING ABNORMAL [None]
  - PARAESTHESIA [None]
  - SLEEP DISORDER [None]
